FAERS Safety Report 10493916 (Version 7)
Quarter: 2015Q4

REPORT INFORMATION
  Report Type: Report from Study
  Country: US (occurrence: US)
  Receive Date: 20141003
  Receipt Date: 20151013
  Transmission Date: 20160304
  Serious: Yes (Hospitalization, Other)
  Sender: FDA-Public Use
  Company Number: US-BIOGENIDEC-2007BI006637

PATIENT
  Age: 48 Year
  Sex: Male
  Weight: 65 kg

DRUGS (14)
  1. AVONEX [Suspect]
     Active Substance: INTERFERON BETA-1A
     Indication: MULTIPLE SCLEROSIS
     Route: 030
     Dates: start: 2005
  2. AVONEX [Suspect]
     Active Substance: INTERFERON BETA-1A
     Indication: MULTIPLE SCLEROSIS
     Route: 030
     Dates: start: 20060101
  3. AVONEX [Suspect]
     Active Substance: INTERFERON BETA-1A
     Indication: MULTIPLE SCLEROSIS
     Route: 030
     Dates: start: 20060130
  4. ATORVASTATIN [Concomitant]
     Active Substance: ATORVASTATIN
  5. AVONEX [Suspect]
     Active Substance: INTERFERON BETA-1A
     Indication: MULTIPLE SCLEROSIS
     Route: 030
     Dates: start: 201412, end: 201503
  6. LEVOTHYROXINE. [Concomitant]
     Active Substance: LEVOTHYROXINE
  7. OXYCARBAZINE [Concomitant]
  8. NITROFURANTOIN. [Concomitant]
     Active Substance: NITROFURANTOIN
  9. METRONIDAZOLE. [Concomitant]
     Active Substance: METRONIDAZOLE
  10. ASPIRIN EC [Concomitant]
     Active Substance: ASPIRIN
  11. LEVOFLOXACIN. [Concomitant]
     Active Substance: LEVOFLOXACIN
  12. DESONIDE 0.05% CREAM [Concomitant]
  13. DIVALPROEX [Concomitant]
     Active Substance: DIVALPROEX SODIUM
  14. MIRTAZAPINE. [Concomitant]
     Active Substance: MIRTAZAPINE

REACTIONS (9)
  - Cerebrovascular accident [Unknown]
  - Sarcoidosis [Unknown]
  - Astrocytoma, low grade [Recovered/Resolved]
  - Pyrexia [Recovered/Resolved]
  - Seizure [Unknown]
  - Multiple sclerosis relapse [Unknown]
  - Liver function test abnormal [Unknown]
  - Frustration [Recovered/Resolved]
  - Influenza like illness [Recovered/Resolved]

NARRATIVE: CASE EVENT DATE: 2006
